FAERS Safety Report 18032525 (Version 1)
Quarter: 2020Q3

REPORT INFORMATION
  Report Type: Spontaneous
  Country: US (occurrence: US)
  Receive Date: 20200716
  Receipt Date: 20200716
  Transmission Date: 20201103
  Serious: Yes (Hospitalization, Other)
  Sender: FDA-Public Use
  Company Number: US-JNJFOC-20200711344

PATIENT
  Sex: Male
  Weight: 99.88 kg

DRUGS (2)
  1. XARELTO [Suspect]
     Active Substance: RIVAROXABAN
     Indication: THROMBOSIS
     Route: 048
  2. LIPITOR [Concomitant]
     Active Substance: ATORVASTATIN CALCIUM
     Indication: PRODUCT USED FOR UNKNOWN INDICATION

REACTIONS (6)
  - Meniscus injury [Unknown]
  - Mouth haemorrhage [Unknown]
  - Spinal fusion surgery [Unknown]
  - Neck surgery [Unknown]
  - Gingival bleeding [Unknown]
  - Skin cancer [Unknown]
